FAERS Safety Report 24137759 (Version 1)
Quarter: 2024Q3

REPORT INFORMATION
  Report Type: Spontaneous
  Country: US (occurrence: None)
  Receive Date: 20240724
  Receipt Date: 20240724
  Transmission Date: 20241016
  Serious: No
  Sender: Public
  Company Number: None

PATIENT
  Age: 82 Year
  Sex: Male

DRUGS (1)
  1. LENALIDOMIDE [Suspect]
     Active Substance: LENALIDOMIDE
     Indication: Lymphoproliferative disorder
     Dosage: 10MG QD ORAL
     Route: 048
     Dates: start: 20240729

REACTIONS (2)
  - Off label use [None]
  - Treatment failure [None]

NARRATIVE: CASE EVENT DATE: 20240724
